FAERS Safety Report 12540583 (Version 1)
Quarter: 2016Q3

REPORT INFORMATION
  Report Type: Spontaneous
  Country: US (occurrence: US)
  Receive Date: 20160708
  Receipt Date: 20160708
  Transmission Date: 20161109
  Serious: No
  Sender: FDA-Public Use
  Company Number: US-TEVA-650663USA

PATIENT
  Age: 58 Year
  Sex: Female

DRUGS (1)
  1. ZECUITY [Suspect]
     Active Substance: SUMATRIPTAN SUCCINATE
     Dosage: 6.5 MG OVE 4 HOURS
     Route: 062
     Dates: start: 201511

REACTIONS (6)
  - Application site irritation [Unknown]
  - Application site pruritus [Unknown]
  - Nausea [Unknown]
  - Dizziness [Unknown]
  - Application site papules [Unknown]
  - Application site erythema [Unknown]

NARRATIVE: CASE EVENT DATE: 201511
